FAERS Safety Report 9392002 (Version 1)
Quarter: 2013Q3

REPORT INFORMATION
  Report Type: Spontaneous
  Country: JP (occurrence: JP)
  Receive Date: 20130709
  Receipt Date: 20130709
  Transmission Date: 20140515
  Serious: Yes (Hospitalization)
  Sender: FDA-Public Use
  Company Number: JP-ELI_LILLY_AND_COMPANY-JP201112002720

PATIENT
  Age: 82 Year
  Sex: Female

DRUGS (2)
  1. FORTEO [Suspect]
     Dosage: UNK
     Route: 058
     Dates: start: 20111108, end: 2012
  2. FORTEO [Suspect]
     Dosage: UNK
     Route: 058
     Dates: start: 2012

REACTIONS (3)
  - Cardiac disorder [Unknown]
  - Dizziness [Unknown]
  - Drug ineffective [Unknown]
